FAERS Safety Report 8186137-2 (Version None)
Quarter: 2012Q1

REPORT INFORMATION
  Report Type: 
  Country: None (occurrence: None)
  Receive Date: 20120306
  Receipt Date: 20120301
  Transmission Date: 20120608
  Serious: No
  Sender: FDA-Public Use
  Company Number: US-PFIZER INC-2012056929

PATIENT
  Sex: Male
  Weight: 158.73 kg

DRUGS (5)
  1. AMARYL [Concomitant]
     Indication: GLUCOSE TOLERANCE IMPAIRED
     Dosage: 4 MG, 2X/DAY
  2. ONGLYZA [Concomitant]
     Indication: GLUCOSE TOLERANCE IMPAIRED
     Dosage: 5 MG, DAILY
  3. METFORMIN [Concomitant]
     Indication: GLUCOSE TOLERANCE IMPAIRED
     Dosage: 500 MG, 2X/DAY
  4. LIPITOR [Suspect]
     Indication: BLOOD CHOLESTEROL INCREASED
     Dosage: 40 MG, DAILY
  5. WELCHOL [Concomitant]
     Indication: BLOOD CHOLESTEROL INCREASED
     Dosage: 625 MG, 2X/DAY

REACTIONS (2)
  - BACK INJURY [None]
  - LIMB INJURY [None]
